FAERS Safety Report 4337070-5 (Version None)
Quarter: 2004Q1

REPORT INFORMATION
  Report Type: 
  Country: None (occurrence: None)
  Receive Date: 20040329
  Receipt Date: 20040122
  Transmission Date: 20041129
  Serious: No
  Sender: FDA-Public Use
  Company Number: USA040157337

PATIENT
  Age: 10 Year
  Sex: Male
  Weight: 30 kg

DRUGS (1)
  1. STRATTERA [Suspect]
     Dosage: 18 MG/DAY
     Dates: start: 20040119

REACTIONS (2)
  - EMOTIONAL DISTRESS [None]
  - FEELING ABNORMAL [None]
